FAERS Safety Report 10543242 (Version 1)
Quarter: 2014Q4

REPORT INFORMATION
  Report Type: Report from Study
  Country: US (occurrence: US)
  Receive Date: 20141027
  Receipt Date: 20141027
  Transmission Date: 20150529
  Serious: Yes (Death)
  Sender: FDA-Public Use
  Company Number: PHEH2014US021439

PATIENT
  Sex: Female
  Weight: 74.97 kg

DRUGS (1)
  1. EXJADE [Suspect]
     Active Substance: DEFERASIROX
     Indication: SICKLE CELL ANAEMIA
     Dosage: 4 DF, DAILY BY STIRRING IN 7 OUNCE OF WATER, ORANGE JUICE OR APPLE JUICE UNTIL SUSPENDED
     Route: 065
     Dates: start: 200912

REACTIONS (1)
  - Death [Fatal]
